FAERS Safety Report 8459870-2 (Version None)
Quarter: 2012Q2

REPORT INFORMATION
  Report Type: 
  Country: None (occurrence: None)
  Receive Date: 20120622
  Receipt Date: 20120615
  Transmission Date: 20120825
  Serious: Yes (Hospitalization)
  Sender: FDA-Public Use
  Company Number: PHFR2012GB002283

PATIENT
  Sex: Female

DRUGS (9)
  1. CLOZARIL [Suspect]
     Indication: SCHIZOPHRENIA
     Dosage: 400 MG, QD
     Route: 048
     Dates: start: 20110823, end: 20120413
  2. SYMBICORT [Concomitant]
     Dosage: UNK UKN, UNK
  3. ALBUTEROL [Concomitant]
     Dosage: UNK UKN, UNK
  4. MIRTAZAPINE [Concomitant]
     Dosage: UNK UKN, UNK
  5. FOLIC ACID [Concomitant]
     Dosage: UNK UKN, UNK
  6. RAMIPRIL [Concomitant]
     Dosage: UNK UKN, UNK
  7. SIMVASTATIN [Concomitant]
     Dosage: UNK UKN, UNK
  8. PROCYCLIDINE HYDROCHLORIDE 2MG TAB [Concomitant]
     Dosage: UNK UKN, UNK
  9. DIAZEPAM [Concomitant]
     Dosage: UNK UKN, UNK

REACTIONS (5)
  - COMA SCALE ABNORMAL [None]
  - PNEUMOTHORAX [None]
  - CARDIAC ARREST [None]
  - DEPRESSED LEVEL OF CONSCIOUSNESS [None]
  - OVERDOSE [None]
